FAERS Safety Report 6100121-1 (Version None)
Quarter: 2009Q1

REPORT INFORMATION
  Report Type: 
  Country: None (occurrence: None)
  Receive Date: 20090227
  Receipt Date: 20090227
  Transmission Date: 20090719
  Serious: Yes (Other)
  Sender: FDA-Public Use
  Company Number: None

PATIENT
  Age: 38 Year
  Sex: Female
  Weight: 87.5442 kg

DRUGS (1)
  1. TAXOTERE [Suspect]
     Dosage: 142 MG ONCE IV
     Route: 042

REACTIONS (4)
  - BACK PAIN [None]
  - DYSPNOEA [None]
  - FEELING ABNORMAL [None]
  - GASTRIC DISORDER [None]
